FAERS Safety Report 8014678-7 (Version None)
Quarter: 2011Q4

REPORT INFORMATION
  Report Type: 
  Country: None (occurrence: None)
  Receive Date: 20111229
  Receipt Date: 20111220
  Transmission Date: 20120403
  Serious: Yes (Hospitalization, Other)
  Sender: FDA-Public Use
  Company Number: US-ASTRAZENECA-2011SE49550

PATIENT
  Age: 72 Year
  Sex: Female

DRUGS (37)
  1. SEROQUEL [Suspect]
     Route: 048
  2. LEVOTHYROXINE SODIUM [Concomitant]
     Indication: THYROID DISORDER
  3. LISINOPRIL AND HYDROCHLOROTHIAZIDE [Concomitant]
  4. LOVAZA [Concomitant]
     Indication: BLOOD TRIGLYCERIDES DECREASED
  5. CLONAPINE [Concomitant]
     Indication: SLEEP DISORDER
  6. TRAMADOL HCL [Concomitant]
     Indication: PAIN
     Dosage: AS REQUIRED
  7. INSULIN [Concomitant]
  8. GABAPENTIN [Concomitant]
     Indication: NERVE INJURY
  9. LACTULOSE [Concomitant]
     Indication: LIVER DISORDER
  10. VITAMIN E [Concomitant]
     Indication: CARDIAC DISORDER
  11. VITAMIN E [Concomitant]
     Indication: MEMORY IMPAIRMENT
  12. COLCRYS [Concomitant]
     Indication: ARTHRITIS
  13. LISINOPRIL [Concomitant]
     Indication: HYPERTENSION
  14. ALLEGRA [Concomitant]
     Indication: SEASONAL ALLERGY
     Dosage: TAKES EVERY 3 MONTHS OR WHEN HAS ALLERGIES
  15. TART CHERRY [Concomitant]
     Indication: ARTHRALGIA
     Dosage: BID
  16. SEROQUEL [Suspect]
     Route: 048
  17. SEROQUEL [Suspect]
     Route: 048
  18. SEROQUEL [Suspect]
     Route: 048
  19. ALLOPURINOL [Concomitant]
     Indication: ARTHRITIS
  20. VITAMIN D [Concomitant]
     Indication: NEUROPATHY PERIPHERAL
  21. SEROQUEL [Suspect]
     Indication: BIPOLAR DISORDER
     Route: 048
     Dates: start: 20000101
  22. DOXEPIN [Concomitant]
     Indication: ANTIDEPRESSANT THERAPY
  23. SEROQUEL [Suspect]
     Indication: NEUROTRANSMITTER LEVEL ALTERED
     Route: 048
     Dates: start: 20000101
  24. SEROQUEL [Suspect]
     Indication: INSOMNIA
     Route: 048
     Dates: start: 20000101
  25. POTASSIUM CHLORIDE [Concomitant]
     Indication: HYPOKALAEMIA
  26. LOPID [Concomitant]
     Indication: BLOOD CHOLESTEROL ABNORMAL
  27. FOLATE ACID [Concomitant]
     Indication: NEUROPATHY PERIPHERAL
  28. SEROQUEL [Suspect]
     Route: 048
  29. SEROQUEL [Suspect]
     Route: 048
  30. PRILOSEC OTC [Concomitant]
     Indication: GASTROOESOPHAGEAL REFLUX DISEASE
  31. HUMULIN R [Concomitant]
     Indication: DIABETES MELLITUS
     Dosage: 70/30 25UNITS IN MORNING AND 15 UNITS AT NIGHT
  32. VITAMIN C [Concomitant]
     Indication: NEUROPATHY PERIPHERAL
  33. ASPIRIN [Concomitant]
     Indication: CARDIAC DISORDER
  34. COQ10 [Concomitant]
     Indication: CARDIAC DISORDER
  35. LIMBREL [Concomitant]
     Indication: ARTHRITIS
     Route: 048
  36. LOVAZA [Concomitant]
     Indication: BLOOD CHOLESTEROL DECREASED
  37. CLONAPINE [Concomitant]
     Indication: FEELING OF RELAXATION

REACTIONS (23)
  - OVARIAN CANCER [None]
  - NEOPLASM MALIGNANT [None]
  - MALAISE [None]
  - GOUT [None]
  - DIABETES MELLITUS [None]
  - INSOMNIA [None]
  - DRUG DOSE OMISSION [None]
  - RENAL FAILURE CHRONIC [None]
  - PSYCHOMOTOR HYPERACTIVITY [None]
  - WRONG TECHNIQUE IN DRUG USAGE PROCESS [None]
  - OSTEOARTHRITIS [None]
  - CARDIAC MURMUR [None]
  - ADVERSE DRUG REACTION [None]
  - DRUG PRESCRIBING ERROR [None]
  - SOMNOLENCE [None]
  - FATIGUE [None]
  - OFF LABEL USE [None]
  - HYPERTENSION [None]
  - NEUROPATHY PERIPHERAL [None]
  - BLOOD CHOLESTEROL INCREASED [None]
  - HEPATIC FAILURE [None]
  - ENDOMETRIAL CANCER [None]
  - THYROID DISORDER [None]
